FAERS Safety Report 25711717 (Version 2)
Quarter: 2025Q4

REPORT INFORMATION
  Report Type: Spontaneous
  Country: US (occurrence: US)
  Receive Date: 20250821
  Receipt Date: 20251216
  Transmission Date: 20260119
  Serious: No
  Sender: IPSEN BIOPHARMACEUTICALS, INC.
  Company Number: US-IPSEN Group, Research and Development-2025-20345

PATIENT
  Age: 36 Year
  Sex: Male
  Weight: 83 kg

DRUGS (35)
  1. TAZVERIK [Suspect]
     Active Substance: TAZEMETOSTAT HYDROBROMIDE
     Indication: Malignant connective tissue neoplasm
     Route: 048
     Dates: start: 202503
  2. TAZVERIK [Suspect]
     Active Substance: TAZEMETOSTAT HYDROBROMIDE
     Route: 048
     Dates: start: 202505
  3. ADVAIR HFA [Concomitant]
     Active Substance: FLUTICASONE PROPIONATE\SALMETEROL XINAFOATE
  4. ALBUTEROL SULFATE [Concomitant]
     Active Substance: ALBUTEROL SULFATE
  5. ANISE OIL [Concomitant]
     Active Substance: ANISE OIL
  6. DIETARY SUPPLEMENT\HERBALS\INDIAN FRANKINCENSE [Concomitant]
     Active Substance: DIETARY SUPPLEMENT\HERBALS\INDIAN FRANKINCENSE
  7. BROMELAINS [Concomitant]
     Active Substance: BROMELAINS
  8. CASCARA SAGRADA [Concomitant]
     Active Substance: FRANGULA PURSHIANA BARK
  9. CHARCOAL ACTIVATED [Concomitant]
     Active Substance: ACTIVATED CHARCOAL
  10. DANDELION ROOT [Concomitant]
  11. HERBALS [Concomitant]
     Active Substance: HERBALS
  12. VITAMIN D3 [Concomitant]
     Active Substance: CHOLECALCIFEROL
  13. GINKGO [Concomitant]
     Active Substance: GINKGO
  14. HERBALS\HOMEOPATHICS\GOLDENSEAL [Concomitant]
     Active Substance: HERBALS\HOMEOPATHICS\GOLDENSEAL
  15. Immunoglobulin [Concomitant]
  16. IVERMECTIN [Concomitant]
     Active Substance: IVERMECTIN
  17. KRILL OIL [Concomitant]
     Active Substance: DIETARY SUPPLEMENT\KRILL OIL
  18. LICORICE [Concomitant]
     Active Substance: LICORICE
  19. MAGNESIUM OXIDE [Concomitant]
     Active Substance: MAGNESIUM OXIDE
  20. MEBENDAZOLE [Concomitant]
     Active Substance: MEBENDAZOLE
  21. ACETYLCYSTEINE [Concomitant]
     Active Substance: ACETYLCYSTEINE
  22. URTICA DIOICA LEAF [Concomitant]
     Active Substance: URTICA DIOICA LEAF
  23. QUERCETIN [Concomitant]
     Active Substance: QUERCETIN
  24. HERBALS\TURMERIC [Concomitant]
     Active Substance: HERBALS\TURMERIC
  25. PORBIOTIC [Concomitant]
  26. VITAMIN C [Concomitant]
     Active Substance: ASCORBIC ACID
  27. ZEOLITE [Concomitant]
  28. SPERMIDINE [Concomitant]
     Active Substance: SPERMIDINE
  29. SHILAJIT [Concomitant]
     Active Substance: FULVIC ACID
  30. NASONEX [Concomitant]
     Active Substance: MOMETASONE FUROATE
  31. wild indigo [Concomitant]
  32. RED CLOVER\DIETARY SUPPLEMENT [Concomitant]
     Active Substance: RED CLOVER\DIETARY SUPPLEMENT
  33. POKE [Concomitant]
  34. Vitamin K1-K3 [Concomitant]
  35. BURDOCK [ARCTIUM LAPPA ROOT] [Concomitant]

REACTIONS (6)
  - Increased viscosity of upper respiratory secretion [Not Recovered/Not Resolved]
  - Gastric pH decreased [Not Recovered/Not Resolved]
  - Anxiety [Not Recovered/Not Resolved]
  - Wheezing [Not Recovered/Not Resolved]
  - Abdominal distension [Not Recovered/Not Resolved]
  - Cough [Not Recovered/Not Resolved]

NARRATIVE: CASE EVENT DATE: 20251127
